FAERS Safety Report 9341771 (Version 1)
Quarter: 2013Q2

REPORT INFORMATION
  Report Type: Spontaneous
  Country: US (occurrence: US)
  Receive Date: 20130611
  Receipt Date: 20130611
  Transmission Date: 20140414
  Serious: Yes (Hospitalization)
  Sender: FDA-Public Use
  Company Number: US-BAYER-2013-070220

PATIENT
  Age: 46 Year
  Sex: Female

DRUGS (10)
  1. YAZ [Suspect]
  2. YASMIN [Suspect]
  3. KLONOPIN [Concomitant]
  4. EFFEXOR [Concomitant]
  5. VITAMINS [Concomitant]
  6. XANAX [Concomitant]
  7. MOTRIN [Concomitant]
  8. L-THYROXINE [Concomitant]
  9. CLONAZEPAM [Concomitant]
  10. COLESTID [Concomitant]

REACTIONS (3)
  - Cholecystitis acute [None]
  - Deep vein thrombosis [None]
  - Thrombophlebitis superficial [None]
